FAERS Safety Report 20476997 (Version 2)
Quarter: 2022Q1

REPORT INFORMATION
  Report Type: Spontaneous
  Country: US (occurrence: US)
  Receive Date: 20220215
  Receipt Date: 20220225
  Transmission Date: 20220423
  Serious: No
  Sender: FDA-Public Use
  Company Number: US-SA-SAC20220209000041

PATIENT
  Age: 62 Year
  Sex: Female
  Weight: 72.6 kg

DRUGS (16)
  1. AUBAGIO [Suspect]
     Active Substance: TERIFLUNOMIDE
     Indication: Multiple sclerosis
     Dosage: 14 MG, QD
     Route: 048
     Dates: start: 20210331
  2. AMPYRA [Concomitant]
     Active Substance: DALFAMPRIDINE
  3. VITAMIN D3 [Concomitant]
     Active Substance: CHOLECALCIFEROL
  4. LISINOPRIL [Concomitant]
     Active Substance: LISINOPRIL
  5. LORAZEPAM [Concomitant]
     Active Substance: LORAZEPAM
  6. SYNTHROID [Concomitant]
     Active Substance: LEVOTHYROXINE SODIUM
  7. LACTULOSE [Concomitant]
     Active Substance: LACTULOSE
  8. VENLAFAXINE HCL [Concomitant]
     Active Substance: VENLAFAXINE HYDROCHLORIDE
  9. FISH OIL [Concomitant]
     Active Substance: FISH OIL
  10. SUCRALFATE [Concomitant]
     Active Substance: SUCRALFATE
  11. MYRBETRIQ [Concomitant]
     Active Substance: MIRABEGRON
  12. LAMOTRIGINE [Concomitant]
     Active Substance: LAMOTRIGINE
  13. TRULICITY [Concomitant]
     Active Substance: DULAGLUTIDE
  14. BACLOFEN [Concomitant]
     Active Substance: BACLOFEN
  15. NUVIGIL [Concomitant]
     Active Substance: ARMODAFINIL
  16. CYANOCOBALAMIN [Concomitant]
     Active Substance: CYANOCOBALAMIN

REACTIONS (7)
  - Malaise [Unknown]
  - Depression [Unknown]
  - Skin exfoliation [Unknown]
  - Peripheral swelling [Unknown]
  - Pain in extremity [Unknown]
  - Pain in extremity [Unknown]
  - Alopecia [Unknown]
